FAERS Safety Report 7074184-3 (Version None)
Quarter: 2010Q4

REPORT INFORMATION
  Report Type: 
  Country: None (occurrence: None)
  Receive Date: 20101029
  Receipt Date: 20101022
  Transmission Date: 20110411
  Serious: Yes (Hospitalization)
  Sender: FDA-Public Use
  Company Number: FR-PFIZER INC-2010129647

PATIENT
  Age: 66 Year
  Sex: Female

DRUGS (21)
  1. CAMPTOSAR [Suspect]
     Dosage: UNK
     Dates: start: 20091109, end: 20100510
  2. CAMPTOSAR [Suspect]
     Dosage: 222  MG ONCE, CYCLIC, EVERY 2 WEEKS
     Route: 042
     Dates: start: 20100721, end: 20100811
  3. FLUOROURACIL [Suspect]
     Dosage: UNK
     Route: 042
     Dates: start: 20090626, end: 20091009
  4. FLUOROURACIL [Suspect]
     Dosage: UNK
     Route: 042
     Dates: start: 20091109, end: 20100510
  5. FLUOROURACIL [Suspect]
     Dosage: 495 MG, CYCLIC, EVERY TWO WEEKS
     Route: 040
     Dates: start: 20100721, end: 20100811
  6. FLUOROURACIL [Suspect]
     Dosage: 742 MG, CYCLIC, DAY  1 AND 2, EVERY TWO WEEKS
     Route: 042
     Dates: start: 20100721, end: 20100811
  7. ELVORINE [Suspect]
     Dosage: UNK
     Route: 042
     Dates: start: 20090626, end: 20091009
  8. ELVORINE [Suspect]
     Dosage: UNK
     Route: 042
     Dates: start: 20091109, end: 20100510
  9. ELVORINE [Suspect]
     Dosage: 165 MG, CYCLIC, EVERY 2 WEEKS
     Route: 042
     Dates: start: 20100721, end: 20100811
  10. SOLU-MEDROL [Concomitant]
     Indication: PREMEDICATION
  11. ERBITUX [Concomitant]
     Dosage: 835 MG ONCE PER CYCLE
     Route: 042
     Dates: start: 20100713, end: 20100713
  12. ONDANSETRON [Concomitant]
     Indication: PREMEDICATION
  13. POLARAMINE [Concomitant]
     Indication: PREMEDICATION
  14. KERLONE [Concomitant]
  15. LERCANIDIPINE [Concomitant]
  16. NISISCO [Concomitant]
  17. GLUCOPHAGE [Concomitant]
  18. ZOCOR [Concomitant]
  19. LEVOTHYROXINE SODIUM [Concomitant]
  20. KARDEGIC [Concomitant]
  21. FLECAINIDE ACETATE [Concomitant]

REACTIONS (2)
  - MICROANGIOPATHIC HAEMOLYTIC ANAEMIA [None]
  - THROMBOCYTOPENIA [None]
